FAERS Safety Report 16799687 (Version 1)
Quarter: 2019Q3

REPORT INFORMATION
  Report Type: Spontaneous
  Country: US (occurrence: US)
  Receive Date: 20190912
  Receipt Date: 20190912
  Transmission Date: 20191005
  Serious: Yes (Death)
  Sender: FDA-Public Use
  Company Number: US-PFIZER INC-2019372868

PATIENT
  Age: 41 Year
  Sex: Female

DRUGS (2)
  1. DEFEROXAMINE MESILATE [Suspect]
     Active Substance: DEFEROXAMINE MESYLATE
     Indication: TOXICITY TO VARIOUS AGENTS
     Dosage: UNK
  2. NOREPINEPHRINE BITARTRATE. [Suspect]
     Active Substance: NOREPINEPHRINE BITARTRATE
     Indication: BLOOD PRESSURE ABNORMAL
     Dosage: UNK (INFUSION WAS STARTED WITH INCREASING DOSE REQUIREMENTS)

REACTIONS (1)
  - Drug ineffective [Fatal]
